FAERS Safety Report 7571347-5 (Version None)
Quarter: 2011Q2

REPORT INFORMATION
  Report Type: 
  Country: None (occurrence: None)
  Receive Date: 20110624
  Receipt Date: 20110614
  Transmission Date: 20111010
  Serious: Yes (Other)
  Sender: FDA-Public Use
  Company Number: B0726794A

PATIENT
  Sex: Female

DRUGS (3)
  1. GASMOTIN [Concomitant]
     Indication: GASTRIC ULCER
     Route: 048
     Dates: start: 20110517
  2. MYONAL [Concomitant]
     Indication: GASTRIC ULCER
     Route: 048
     Dates: start: 20110517
  3. ZANTAC [Suspect]
     Indication: GASTRIC ULCER
     Route: 048
     Dates: start: 20110517

REACTIONS (2)
  - HALLUCINATION [None]
  - ABNORMAL BEHAVIOUR [None]
